FAERS Safety Report 11708488 (Version 1)
Quarter: 2015Q4

REPORT INFORMATION
  Report Type: Spontaneous
  Country: US (occurrence: US)
  Receive Date: 20151104
  Receipt Date: 20151104
  Transmission Date: 20160304
  Serious: No
  Sender: FDA-Public Use
  Company Number: US-ELI_LILLY_AND_COMPANY-US201103001862

PATIENT
  Age: 82 Year
  Sex: Male

DRUGS (9)
  1. FORTEO [Suspect]
     Active Substance: TERIPARATIDE
     Indication: OSTEOPOROSIS
     Dosage: 20 UG, DAILY (1/D)
     Dates: start: 201001
  2. VITAMIN D3 [Concomitant]
     Active Substance: CHOLECALCIFEROL
  3. CO-Q10 [Concomitant]
  4. FORTEO [Suspect]
     Active Substance: TERIPARATIDE
     Dosage: 20 UG, DAILY (1/D)
  5. LISINOPRIL. [Concomitant]
     Active Substance: LISINOPRIL
  6. FORTEO [Suspect]
     Active Substance: TERIPARATIDE
     Dosage: 20 UG, DAILY (1/D)
  7. PRAVASTATIN [Concomitant]
     Active Substance: PRAVASTATIN\PRAVASTATIN SODIUM
  8. FENOFIBRATE. [Concomitant]
     Active Substance: FENOFIBRATE
  9. GLUCOSAMINE CHONDROITIN [Concomitant]
     Active Substance: CHONDROITIN SULFATE (BOVINE)\GLUCOSAMINE HYDROCHLORIDE

REACTIONS (10)
  - Rotator cuff syndrome [Unknown]
  - Contusion [Recovering/Resolving]
  - Blood calcium decreased [Unknown]
  - Thyroid disorder [Unknown]
  - Rotator cuff syndrome [Unknown]
  - Injection site bruising [Unknown]
  - Musculoskeletal pain [Unknown]
  - Muscle rupture [Unknown]
  - Drug dose omission [Unknown]
  - Medication error [Unknown]

NARRATIVE: CASE EVENT DATE: 201001
